FAERS Safety Report 8308556-3 (Version None)
Quarter: 2012Q2

REPORT INFORMATION
  Report Type: 
  Country: None (occurrence: None)
  Receive Date: 20120424
  Receipt Date: 20120411
  Transmission Date: 20120825
  Serious: Yes (Life-Threatening)
  Sender: FDA-Public Use
  Company Number: CA-ELI_LILLY_AND_COMPANY-CA201204003500

PATIENT
  Age: 77 Year
  Sex: Female
  Weight: 68 kg

DRUGS (7)
  1. METFORMIN HCL [Concomitant]
  2. CYMBALTA [Suspect]
     Dosage: 60 MG, QD
     Route: 048
  3. ZOCOR [Concomitant]
  4. LEVOTHYROXINE SODIUM [Concomitant]
  5. PRILOSEC [Concomitant]
  6. TIAZAC [Concomitant]
  7. ATENOLOL [Concomitant]

REACTIONS (9)
  - ABDOMINAL DISCOMFORT [None]
  - GASTROOESOPHAGEAL REFLUX DISEASE [None]
  - VISION BLURRED [None]
  - SWELLING [None]
  - ALLERGY TO CHEMICALS [None]
  - VOMITING [None]
  - DISORIENTATION [None]
  - DIZZINESS [None]
  - FLATULENCE [None]
